FAERS Safety Report 20532439 (Version 1)
Quarter: 2022Q1

REPORT INFORMATION
  Report Type: Spontaneous
  Country: FR (occurrence: None)
  Receive Date: 20220301
  Receipt Date: 20220301
  Transmission Date: 20220423
  Serious: Yes (Life-Threatening, Hospitalization, Other)
  Sender: FDA-Public Use
  Company Number: 2022A061723

PATIENT
  Age: 80 Year
  Sex: Male
  Weight: 86 kg

DRUGS (12)
  1. DAPAGLIFLOZIN [Suspect]
     Active Substance: DAPAGLIFLOZIN
     Indication: Type 2 diabetes mellitus
     Route: 048
     Dates: start: 20211015, end: 20211027
  2. DAPAGLIFLOZIN [Suspect]
     Active Substance: DAPAGLIFLOZIN
     Indication: Type 2 diabetes mellitus
     Route: 048
     Dates: start: 20211030, end: 20211102
  3. ELIQUIS [Concomitant]
     Active Substance: APIXABAN
     Dosage: 2.5 MG IN THE MORNING AND IN THE EVENING
     Route: 065
  4. PLAVIX [Concomitant]
     Active Substance: CLOPIDOGREL BISULFATE
     Dosage: 75.0MG UNKNOWN
     Route: 065
  5. BISOPROLOL [Concomitant]
     Active Substance: BISOPROLOL
     Dosage: 2.5 MG IN THE MORNING
     Route: 065
  6. BISOPROLOL [Concomitant]
     Active Substance: BISOPROLOL
     Dosage: 12.5 MG IN THE EVENING
     Route: 065
  7. RAMIPRIL [Concomitant]
     Active Substance: RAMIPRIL
     Dosage: 2.5 MG IN THE MORNING AND IN THE EVENING
     Route: 065
  8. POTASSIUM CHLORIDE [Concomitant]
     Active Substance: POTASSIUM CHLORIDE
     Dosage: 600 MG TWICE DAILY,
     Route: 065
  9. METFORMIN HYDROCHLORIDE [Concomitant]
     Active Substance: METFORMIN HYDROCHLORIDE
     Dosage: 500 MG IN THE MORNING AND IN THE EVENING,
     Route: 065
  10. ATORVASTATIN [Concomitant]
     Active Substance: ATORVASTATIN
     Dosage: 80 MG IN THE EVENING,
     Route: 065
  11. LANSOPRAZOLE [Concomitant]
     Active Substance: LANSOPRAZOLE
     Dosage: 15 MG IN THE EVENING
     Route: 065
  12. XATRAL XR [Concomitant]
     Dosage: 10 MG DAILY
     Route: 065

REACTIONS (14)
  - Fournier^s gangrene [Not Recovered/Not Resolved]
  - Diarrhoea [Unknown]
  - Hyponatraemia [Unknown]
  - Dermatitis diaper [Unknown]
  - Skin plaque [Unknown]
  - Acute kidney injury [Unknown]
  - Inflammation [Unknown]
  - Pneumonia [Unknown]
  - Tissue infiltration [Unknown]
  - Hyperthermia [Unknown]
  - Anal injury [Unknown]
  - Anal abscess [Unknown]
  - Perineal abscess [Unknown]
  - Dermo-hypodermitis [Unknown]
